FAERS Safety Report 14851099 (Version 1)
Quarter: 2018Q2

REPORT INFORMATION
  Report Type: Spontaneous
  Country: DE (occurrence: DE)
  Receive Date: 20180507
  Receipt Date: 20180507
  Transmission Date: 20180711
  Serious: Yes (Hospitalization)
  Sender: FDA-Public Use
  Company Number: DE-ROCHE-2113871

PATIENT
  Age: 68 Year
  Sex: Female
  Weight: 78 kg

DRUGS (5)
  1. LEVOTHYROXINE SODIUM. [Concomitant]
     Active Substance: LEVOTHYROXINE SODIUM
     Dosage: 50 MCG, 1-0-0
     Route: 048
  2. PERTUZUMAB. [Suspect]
     Active Substance: PERTUZUMAB
     Indication: PRODUCT USED FOR UNKNOWN INDICATION
     Route: 042
  3. DOCETAXEL. [Suspect]
     Active Substance: DOCETAXEL
     Indication: PRODUCT USED FOR UNKNOWN INDICATION
     Route: 042
  4. HUMALOG MIX [Concomitant]
     Active Substance: INSULIN LISPRO
     Dosage: 50/50 IE, 35-35-0,
     Route: 058
  5. TRASTUZUMAB. [Suspect]
     Active Substance: TRASTUZUMAB
     Indication: PRODUCT USED FOR UNKNOWN INDICATION
     Route: 042

REACTIONS (4)
  - Vomiting [Unknown]
  - Leukopenia [Unknown]
  - Nausea [Unknown]
  - General physical health deterioration [Unknown]
